FAERS Safety Report 8952658 (Version 1)
Quarter: 2012Q4

REPORT INFORMATION
  Report Type: 
  Country: FR (occurrence: FR)
  Receive Date: 20121205
  Receipt Date: 20121205
  Transmission Date: 20130627
  Serious: Yes (Hospitalization)
  Sender: FDA-Public Use
  Company Number: FR-US-EMD SERONO, INC.-7178568

PATIENT
  Age: 36 Year
  Sex: Male

DRUGS (9)
  1. REBIF [Suspect]
     Indication: MULTIPLE SCLEROSIS
     Route: 058
     Dates: end: 20121125
  2. CERIS [Concomitant]
     Indication: PRODUCT USED FOR UNKNOWN INDICATION
  3. GABAPENTINE [Concomitant]
     Indication: PRODUCT USED FOR UNKNOWN INDICATION
  4. LIORESAL [Concomitant]
     Indication: PRODUCT USED FOR UNKNOWN INDICATION
  5. SEROPLEX [Concomitant]
     Indication: PRODUCT USED FOR UNKNOWN INDICATION
  6. TERCIAN [Concomitant]
     Indication: PRODUCT USED FOR UNKNOWN INDICATION
  7. OXYBUTINE [Concomitant]
     Indication: BLADDER SPHINCTER ATONY
  8. PARACETAMOL [Concomitant]
     Indication: PROPHYLAXIS
  9. VOLTARENE [Concomitant]
     Indication: PROPHYLAXIS

REACTIONS (1)
  - Urinary tract infection [Not Recovered/Not Resolved]
